FAERS Safety Report 7470662-3 (Version None)
Quarter: 2011Q2

REPORT INFORMATION
  Report Type: 
  Country: None (occurrence: None)
  Receive Date: 20110510
  Receipt Date: 20110422
  Transmission Date: 20111010
  Serious: No
  Sender: FDA-Public Use
  Company Number: US-B.I. PHARMACEUTICALS,INC./RIDGEFIELD-2011-BP-06104BP

PATIENT
  Sex: Female

DRUGS (11)
  1. FUROSEMIDE [Concomitant]
  2. PRINIVIL [Concomitant]
     Indication: HYPERTENSION
  3. ZANTAC [Concomitant]
  4. SOTALOL HCL [Concomitant]
     Indication: ATRIAL FIBRILLATION
  5. CALCIUM [Concomitant]
     Indication: PROPHYLAXIS
  6. SPIRONOLACTONE [Concomitant]
     Indication: HYPERTENSION
  7. LEVOTHYROXINE SODIUM [Concomitant]
     Indication: HYPOTHYROIDISM
  8. VESICARE [Concomitant]
     Indication: BLADDER DISORDER
  9. LANOXIN [Concomitant]
     Indication: ATRIAL FIBRILLATION
  10. PRADAXA [Suspect]
     Indication: ATRIAL FIBRILLATION
     Dosage: 300 MG
     Route: 048
     Dates: start: 20110203
  11. FIBER CON [Concomitant]

REACTIONS (4)
  - HAEMATOCHEZIA [None]
  - FLATULENCE [None]
  - DIVERTICULITIS [None]
  - GASTROINTESTINAL PAIN [None]
